FAERS Safety Report 6744923-7 (Version None)
Quarter: 2010Q2

REPORT INFORMATION
  Report Type: 
  Country: None (occurrence: None)
  Receive Date: 20100527
  Receipt Date: 20100520
  Transmission Date: 20101027
  Serious: Yes (Death)
  Sender: FDA-Public Use
  Company Number: DE-AMGEN-QUU413398

PATIENT
  Sex: Male

DRUGS (4)
  1. VECTIBIX [Suspect]
     Indication: COLORECTAL CANCER
     Dates: start: 20090909, end: 20100413
  2. LORAZEPAM [Concomitant]
     Dates: start: 20100429
  3. IRON [Concomitant]
     Route: 042
     Dates: start: 20100417, end: 20100418
  4. ROCEPHIN [Concomitant]
     Dates: start: 20100413, end: 20100419

REACTIONS (6)
  - DEATH [None]
  - HAEMATOCRIT DECREASED [None]
  - HAEMOGLOBIN DECREASED [None]
  - NEUTROPHIL COUNT INCREASED [None]
  - PLATELET COUNT INCREASED [None]
  - WHITE BLOOD CELL COUNT INCREASED [None]
